FAERS Safety Report 10861664 (Version 1)
Quarter: 2015Q1

REPORT INFORMATION
  Report Type: Spontaneous
  Country: US (occurrence: US)
  Receive Date: 20150224
  Receipt Date: 20150224
  Transmission Date: 20150721
  Serious: No
  Sender: FDA-Public Use
  Company Number: US-009507513-1502USA009936

PATIENT

DRUGS (5)
  1. CLARITIN [Suspect]
     Active Substance: LORATADINE
     Indication: SNEEZING
  2. CLARITIN [Suspect]
     Active Substance: LORATADINE
     Indication: PRURITUS
  3. CLARITIN [Suspect]
     Active Substance: LORATADINE
     Indication: RESPIRATORY TRACT CONGESTION
  4. CLARITIN [Suspect]
     Active Substance: LORATADINE
     Indication: RHINORRHOEA
  5. CLARITIN [Suspect]
     Active Substance: LORATADINE
     Indication: HYPERSENSITIVITY
     Dosage: UNK, UNKNOWN
     Route: 048

REACTIONS (1)
  - Disorientation [Unknown]
